FAERS Safety Report 23710617 (Version 1)
Quarter: 2024Q2

REPORT INFORMATION
  Report Type: Spontaneous
  Country: US (occurrence: US)
  Receive Date: 20240405
  Receipt Date: 20240405
  Transmission Date: 20240716
  Serious: Yes (Life-Threatening, Hospitalization, Other)
  Sender: FDA-Public Use
  Company Number: US-MLMSERVICE-20240319-4894026-1

PATIENT
  Age: 18 Year
  Sex: Male

DRUGS (1)
  1. ACETAMINOPHEN [Suspect]
     Active Substance: ACETAMINOPHEN
     Indication: Product used for unknown indication
     Dosage: 125 GRAM 1 TOTAL
     Route: 048

REACTIONS (5)
  - Analgesic drug level increased [Recovered/Resolved]
  - Hepatic enzyme increased [Recovered/Resolved]
  - Mental status changes [Recovered/Resolved]
  - Shock [Recovered/Resolved]
  - Overdose [Unknown]
